FAERS Safety Report 10155014 (Version 1)
Quarter: 2014Q2

REPORT INFORMATION
  Report Type: Spontaneous
  Country: US (occurrence: None)
  Receive Date: 20140505
  Receipt Date: 20140505
  Transmission Date: 20141212
  Serious: Yes (Disabling)
  Sender: FDA-Public Use
  Company Number: None

PATIENT
  Age: 27 Year
  Sex: Female
  Weight: 70.31 kg

DRUGS (1)
  1. CIPRO [Suspect]
     Indication: URINARY TRACT INFECTION
     Route: 048

REACTIONS (6)
  - Arthralgia [None]
  - Hepatic pain [None]
  - Arthropathy [None]
  - Muscle disorder [None]
  - Tendon disorder [None]
  - Gastrointestinal disorder [None]
